FAERS Safety Report 20004737 (Version 1)
Quarter: 2021Q4

REPORT INFORMATION
  Report Type: Spontaneous
  Country: US (occurrence: US)
  Receive Date: 20211027
  Receipt Date: 20211027
  Transmission Date: 20220303
  Serious: Yes (Other)
  Sender: FDA-Public Use
  Company Number: None

PATIENT
  Age: 87 Year
  Sex: Male
  Weight: 50.13 kg

DRUGS (4)
  1. FENTANYL [Suspect]
     Active Substance: FENTANYL
     Dosage: ?          OTHER FREQUENCY:Q 72HRS;
     Route: 062
  2. Mophine [Concomitant]
  3. HALOPERIDOL [Concomitant]
     Active Substance: HALOPERIDOL
  4. OMEPRAZOLE [Concomitant]
     Active Substance: OMEPRAZOLE

REACTIONS (2)
  - Respiratory rate decreased [None]
  - Hyporesponsive to stimuli [None]

NARRATIVE: CASE EVENT DATE: 20210827
